FAERS Safety Report 21248881 (Version 1)
Quarter: 2022Q3

REPORT INFORMATION
  Report Type: Spontaneous
  Country: US (occurrence: US)
  Receive Date: 20220824
  Receipt Date: 20220824
  Transmission Date: 20221027
  Serious: No
  Sender: FDA-Public Use
  Company Number: US-ANIPHARMA-2021-US-023959

PATIENT
  Age: 68 Year
  Sex: Female
  Weight: 76.2 kg

DRUGS (5)
  1. ARIMIDEX [Suspect]
     Active Substance: ANASTROZOLE
     Indication: Breast cancer
     Dosage: ONE TABLET DAILY
     Route: 048
     Dates: start: 2012
  2. PFIZER-BIONTECH COVID-19 VACCINE [Suspect]
     Active Substance: TOZINAMERAN
     Route: 065
     Dates: start: 202104
  3. VITAMINS [Concomitant]
     Active Substance: VITAMINS
     Route: 065
  4. Unspecified injection for high cholesterol [Concomitant]
     Dosage: EVERY 2 WEEKS
     Route: 065
  5. Unspecified injection for osteoporosis [Concomitant]
     Dosage: EVERY 6 MONTHS
     Route: 065

REACTIONS (3)
  - Back pain [Not Recovered/Not Resolved]
  - Renal function test abnormal [Unknown]
  - Arthralgia [Not Recovered/Not Resolved]

NARRATIVE: CASE EVENT DATE: 20210401
